FAERS Safety Report 7083637-3 (Version None)
Quarter: 2010Q4

REPORT INFORMATION
  Report Type: 
  Country: None (occurrence: None)
  Receive Date: 20101104
  Receipt Date: 20101025
  Transmission Date: 20110411
  Serious: Yes (Hospitalization)
  Sender: FDA-Public Use
  Company Number: US-JNJFOC-20100906846

PATIENT
  Sex: Female
  Weight: 64.86 kg

DRUGS (6)
  1. REMICADE [Suspect]
     Indication: CROHN'S DISEASE
     Route: 042
  2. ATIVAN [Concomitant]
  3. FLEXTRA DS [Concomitant]
     Dosage: DOSE 650/60 EVERY 4-6 HOURS AS NEEDED
  4. PREMARIN [Concomitant]
  5. ROBAXIN [Concomitant]
  6. CYMBALTA [Concomitant]

REACTIONS (8)
  - AMNESIA [None]
  - APPARENT DEATH [None]
  - DIPLOPIA [None]
  - FATIGUE [None]
  - HALLUCINATION [None]
  - HEADACHE [None]
  - MENINGITIS [None]
  - MYALGIA [None]
